FAERS Safety Report 9730758 (Version 1)
Quarter: 2013Q4

REPORT INFORMATION
  Report Type: Spontaneous
  Country: KR (occurrence: KR)
  Receive Date: 20131202
  Receipt Date: 20131202
  Transmission Date: 20140711
  Serious: Yes (Hospitalization)
  Sender: FDA-Public Use
  Company Number: KR-MYLANLABS-2013S1026350

PATIENT
  Age: 36 Year
  Sex: Female

DRUGS (2)
  1. PREDNISOLONE [Suspect]
     Indication: SYSTEMIC LUPUS ERYTHEMATOSUS
     Dosage: 10MG THEN INCREASED TO 30MG
     Route: 048
  2. PREDNISOLONE [Suspect]
     Indication: SYSTEMIC LUPUS ERYTHEMATOSUS
     Dosage: 30MG
     Route: 048

REACTIONS (3)
  - Uterine rupture [Recovering/Resolving]
  - Syncope [Recovering/Resolving]
  - Cerebral infarction [Unknown]
